FAERS Safety Report 5801792-7 (Version None)
Quarter: 2008Q3

REPORT INFORMATION
  Report Type: 
  Country: None (occurrence: None)
  Receive Date: 20080707
  Receipt Date: 20080623
  Transmission Date: 20090109
  Serious: Yes (Hospitalization)
  Sender: FDA-Public Use
  Company Number: US-ROCHE-566243

PATIENT
  Age: 84 Year
  Sex: Male

DRUGS (10)
  1. BONIVA [Suspect]
     Indication: OSTEOPOROSIS
     Route: 048
     Dates: start: 20070101, end: 20080101
  2. BONIVA [Suspect]
     Route: 042
     Dates: start: 20080501
  3. ASPIRIN [Suspect]
     Indication: DRUG USE FOR UNKNOWN INDICATION
     Dosage: BABY ASPIRIN
     Route: 048
     Dates: end: 20080101
  4. ACTOS [Concomitant]
  5. COZAAR [Concomitant]
  6. METOPROLOL SUCCINATE [Concomitant]
  7. CALCIUM NOS [Concomitant]
  8. LASIX [Concomitant]
  9. UNSPECIFIED DRUG [Concomitant]
     Dosage: HEART PILL
  10. UNSPECIFIED DRUG [Concomitant]
     Dosage: BLUE PILL FOR BLADDER

REACTIONS (1)
  - RECTAL HAEMORRHAGE [None]
